FAERS Safety Report 8490037-8 (Version None)
Quarter: 2012Q2

REPORT INFORMATION
  Report Type: 
  Country: None (occurrence: None)
  Receive Date: 20120626
  Receipt Date: 20120613
  Transmission Date: 20120825
  Serious: Yes (Death)
  Sender: FDA-Public Use
  Company Number: ADR-UNK-054

PATIENT

DRUGS (6)
  1. 32-RALTEGRAVIR (ISENTRESS, RAL) [Concomitant]
  2. TENOFOVIR DISOPROXIL FUMARATE+EMTRICITABINE (TRUVADA@TVD) [Concomitant]
  3. EFAVIRENZA (STOCRIN, EFV) [Concomitant]
  4. EFAVIRENZ [Suspect]
     Indication: ACQUIRED IMMUNODEFICIENCY SYNDROME
     Dosage: 1 COURSE 1200 MG/DAY ORAL
     Route: 048
     Dates: start: 20061211, end: 20110710
  5. TENOFOVIR DISOPROXIL FUMARATE + EMTRICITABINE (TRUVADATVD) [Concomitant]
  6. ATENOFOVIR DISOPROXIL FUMARATE + EMTRICITABINE (TRUVADA TVD) [Concomitant]

REACTIONS (3)
  - ABORTION SPONTANEOUS [None]
  - PREGNANCY [None]
  - MATERNAL EXPOSURE DURING PREGNANCY [None]
